FAERS Safety Report 4384285-6 (Version None)
Quarter: 2004Q2

REPORT INFORMATION
  Report Type: 
  Country: None (occurrence: None)
  Receive Date: 20040618
  Receipt Date: 20040607
  Transmission Date: 20050107
  Serious: Yes (Life-Threatening, Hospitalization, Other)
  Sender: FDA-Public Use
  Company Number: HQWYE306307JUN04

PATIENT
  Age: 79 Year
  Sex: Female

DRUGS (18)
  1. CORDARONE [Suspect]
     Indication: CARDIAC FIBRILLATION
     Dosage: 200 MG - 400 MG, DAILY
     Dates: start: 20031221, end: 20040112
  2. PLAVIX [Concomitant]
     Indication: CORONARY ANGIOPLASTY
     Dosage: TABLET 75 MG, ORAL
     Route: 048
     Dates: start: 20031212, end: 20040112
  3. PLAVIX [Concomitant]
     Indication: STENT PLACEMENT
     Dosage: TABLET 75 MG, ORAL
     Route: 048
     Dates: start: 20031212, end: 20040112
  4. LERCANIDIPINE [Concomitant]
  5. MOXONIDINE [Concomitant]
  6. FUROSEMIDE [Concomitant]
  7. ISOSORBIDE MONONITRATE [Concomitant]
  8. ENOXAPARIN SODIUM [Concomitant]
  9. METOPROLOL TARTRATE [Concomitant]
  10. ATORVASTATIN CALCIUM [Concomitant]
  11. PREDNISOLONE [Concomitant]
  12. POTASSIUM [Concomitant]
  13. ACETYLSALICYLIC ACID SRT [Concomitant]
  14. ZOPICLONE [Concomitant]
  15. VITAMIN A [Concomitant]
  16. WARFARIN SODIUM [Concomitant]
  17. PRAZOSIN HCL [Concomitant]
  18. CALCIUM WITH VITAMIN D (CALCIUM PHOSPHATE/CALCIUM SODIUM LACTATE/ERGOC [Concomitant]

REACTIONS (3)
  - AGRANULOCYTOSIS [None]
  - HAEMOGLOBIN ABNORMAL [None]
  - PNEUMONIA [None]
